FAERS Safety Report 17485534 (Version 3)
Quarter: 2020Q3

REPORT INFORMATION
  Report Type: Report from Study
  Country: US (occurrence: US)
  Receive Date: 20200302
  Receipt Date: 20200917
  Transmission Date: 20201102
  Serious: No
  Sender: FDA-Public Use
  Company Number: US-SA-2020SA054183

PATIENT

DRUGS (2)
  1. DUPILUMAB [Suspect]
     Active Substance: DUPILUMAB
     Indication: DERMATITIS ATOPIC
     Dosage: UNK , 1X, LOADING DOSE
     Route: 058
     Dates: start: 20190419, end: 20190419
  2. DUPILUMAB [Suspect]
     Active Substance: DUPILUMAB
     Dosage: 300 MG, QOW
     Route: 058
     Dates: end: 202003

REACTIONS (7)
  - Unevaluable event [Unknown]
  - Dermatitis atopic [Unknown]
  - Eczema [Unknown]
  - Product dose omission issue [Unknown]
  - Blister [Unknown]
  - Off label use [Unknown]
  - Dermatitis atopic [Unknown]

NARRATIVE: CASE EVENT DATE: 202008
